FAERS Safety Report 18611905 (Version 2)
Quarter: 2020Q4

REPORT INFORMATION
  Report Type: Spontaneous
  Country: AU (occurrence: AU)
  Receive Date: 20201214
  Receipt Date: 20201221
  Transmission Date: 20210114
  Serious: Yes (Other)
  Sender: FDA-Public Use
  Company Number: AU-PFIZER INC-2020488200

PATIENT
  Age: 70 Year
  Sex: Female

DRUGS (1)
  1. ALDACTONE [Suspect]
     Active Substance: SPIRONOLACTONE
     Indication: HAIR GROWTH ABNORMAL
     Dosage: 25 MG

REACTIONS (2)
  - Haemorrhage [Recovered/Resolved]
  - Contusion [Recovered/Resolved]
